FAERS Safety Report 25891309 (Version 2)
Quarter: 2025Q4

REPORT INFORMATION
  Report Type: Spontaneous
  Country: EU (occurrence: EU)
  Receive Date: 20251007
  Receipt Date: 20251010
  Transmission Date: 20260118
  Serious: No
  Sender: MYLAN
  Company Number: EU-MYLANLABS-2025M1024593

PATIENT

DRUGS (1)
  1. ARIXTRA [Suspect]
     Active Substance: FONDAPARINUX SODIUM
     Indication: Product used for unknown indication
     Dosage: UNK

REACTIONS (3)
  - Needle issue [Unknown]
  - Syringe issue [Unknown]
  - Product quality issue [Unknown]
